FAERS Safety Report 8975341 (Version 2)
Quarter: 2013Q2

REPORT INFORMATION
  Report Type: Spontaneous
  Country: US (occurrence: US)
  Receive Date: 20121219
  Receipt Date: 20130606
  Transmission Date: 20140414
  Serious: No
  Sender: FDA-Public Use
  Company Number: US-AMGEN-USASP2012071144

PATIENT
  Age: 70 Year
  Sex: Female
  Weight: 90 kg

DRUGS (6)
  1. PROLIA [Suspect]
     Indication: PRODUCT USED FOR UNKNOWN INDICATION
     Dosage: 60 MG, ONE TIME DOSE
     Route: 058
     Dates: start: 20120609, end: 20120609
  2. ERGOCALCIFEROL [Concomitant]
     Dosage: 1000000 IU, QMO
     Route: 048
  3. LIVALO [Concomitant]
     Indication: BLOOD CHOLESTEROL
     Dosage: UNK
     Route: 048
  4. LORAZEPAM [Concomitant]
     Indication: ANXIETY
     Dosage: 0.5 MG, QID
     Route: 048
  5. SYNTHROID [Concomitant]
     Dosage: 50 MUG, QD
     Route: 048
  6. VITAMIN B12                        /00056201/ [Concomitant]
     Dosage: 2500 IU, QMO
     Route: 058

REACTIONS (2)
  - Pruritus generalised [Recovered/Resolved]
  - Urinary tract infection [Unknown]
